FAERS Safety Report 10243114 (Version 1)
Quarter: 2014Q2

REPORT INFORMATION
  Report Type: Spontaneous
  Country: US (occurrence: None)
  Receive Date: 20140616
  Receipt Date: 20140616
  Transmission Date: 20141212
  Serious: No
  Sender: FDA-Public Use
  Company Number: None

PATIENT
  Age: 63 Year
  Sex: Female

DRUGS (3)
  1. TAFINLAR [Suspect]
     Indication: MALIGNANT MELANOMA
     Route: 048
     Dates: start: 20140221
  2. LISINOPRIL [Concomitant]
  3. PAXIL [Concomitant]

REACTIONS (3)
  - Vision blurred [None]
  - Cataract [None]
  - Glaucoma [None]
